FAERS Safety Report 13790856 (Version 2)
Quarter: 2017Q3

REPORT INFORMATION
  Report Type: Spontaneous
  Country: CH (occurrence: CH)
  Receive Date: 20170725
  Receipt Date: 20170731
  Transmission Date: 20171127
  Serious: Yes (Hospitalization)
  Sender: FDA-Public Use
  Company Number: CH-BAYER-2017-136836

PATIENT
  Age: 85 Year
  Sex: Female

DRUGS (12)
  1. ALDACTONE A [Concomitant]
     Active Substance: SPIRONOLACTONE
     Route: 048
  2. MARCOUMAR [Suspect]
     Active Substance: PHENPROCOUMON
     Route: 048
     Dates: end: 20170605
  3. TOREM [Concomitant]
     Active Substance: TORSEMIDE
     Route: 048
  4. PANTOZOL [Concomitant]
     Active Substance: PANTOPRAZOLE SODIUM
  5. CRESTOR [Concomitant]
     Active Substance: ROSUVASTATIN CALCIUM
  6. KCL RETARD ZYMA [Concomitant]
     Active Substance: POTASSIUM CHLORIDE
  7. CONCOR [Concomitant]
     Active Substance: BISOPROLOL FUMARATE
     Route: 048
  8. REVATIO [Concomitant]
     Active Substance: SILDENAFIL CITRATE
  9. ASPIRIN CARDIO 100 MG [Suspect]
     Active Substance: ASPIRIN
     Dosage: 1 DF, QD
     Route: 048
  10. PLAVIX [Suspect]
     Active Substance: CLOPIDOGREL BISULFATE
     Dosage: 1 DF, QD
     Dates: end: 201706
  11. ARANESP [Concomitant]
     Active Substance: DARBEPOETIN ALFA
  12. ROCALTROL [Concomitant]
     Active Substance: CALCITRIOL

REACTIONS (3)
  - Shock haemorrhagic [Recovered/Resolved]
  - Anaemia [Recovering/Resolving]
  - Prothrombin time prolonged [Recovered/Resolved]

NARRATIVE: CASE EVENT DATE: 20170605
